FAERS Safety Report 13365734 (Version 1)
Quarter: 2017Q1

REPORT INFORMATION
  Report Type: Spontaneous
  Country: US (occurrence: US)
  Receive Date: 20170323
  Receipt Date: 20170323
  Transmission Date: 20170429
  Serious: No
  Sender: FDA-Public Use
  Company Number: US-WARNER CHILCOTT-2016-002022

PATIENT
  Sex: Female

DRUGS (2)
  1. ESTRACE [Suspect]
     Active Substance: ESTRADIOL
     Dosage: 4 GRAMS DAILY FOR THE FIRST WEEK
     Route: 067
  2. ESTRACE [Suspect]
     Active Substance: ESTRADIOL
     Dosage: 1 GRAM 3 TIMES WEEKLY
     Route: 067

REACTIONS (3)
  - Abdominal tenderness [Recovered/Resolved]
  - Abdominal pain [Recovered/Resolved]
  - Application site discharge [Not Recovered/Not Resolved]
